FAERS Safety Report 20146182 (Version 3)
Quarter: 2024Q1

REPORT INFORMATION
  Report Type: Report from Study
  Country: NO (occurrence: NO)
  Receive Date: 20211203
  Receipt Date: 20240219
  Transmission Date: 20240409
  Serious: Yes (Other)
  Sender: FDA-Public Use
  Company Number: NO-TAKEDA-2021TUS076299

PATIENT
  Age: 7 Year
  Sex: Female

DRUGS (30)
  1. TEDUGLUTIDE [Suspect]
     Active Substance: TEDUGLUTIDE
     Indication: Short-bowel syndrome
     Dosage: 0.5 MILLIGRAM, QD
     Route: 042
     Dates: start: 20170208, end: 20170925
  2. TEDUGLUTIDE [Suspect]
     Active Substance: TEDUGLUTIDE
     Indication: Short-bowel syndrome
     Dosage: 0.5 MILLIGRAM, QD
     Route: 042
     Dates: start: 20170208, end: 20170925
  3. TEDUGLUTIDE [Suspect]
     Active Substance: TEDUGLUTIDE
     Indication: Short-bowel syndrome
     Dosage: 0.5 MILLIGRAM, QD
     Route: 042
     Dates: start: 20170208, end: 20170925
  4. TEDUGLUTIDE [Suspect]
     Active Substance: TEDUGLUTIDE
     Indication: Short-bowel syndrome
     Dosage: 0.5 MILLIGRAM, QD
     Route: 042
     Dates: start: 20170208, end: 20170925
  5. TEDUGLUTIDE [Suspect]
     Active Substance: TEDUGLUTIDE
     Dosage: 0.5 MILLIGRAM, QD
     Route: 042
     Dates: start: 20180106, end: 20190916
  6. TEDUGLUTIDE [Suspect]
     Active Substance: TEDUGLUTIDE
     Dosage: 0.5 MILLIGRAM, QD
     Route: 042
     Dates: start: 20180106, end: 20190916
  7. TEDUGLUTIDE [Suspect]
     Active Substance: TEDUGLUTIDE
     Dosage: 0.5 MILLIGRAM, QD
     Route: 042
     Dates: start: 20180106, end: 20190916
  8. TEDUGLUTIDE [Suspect]
     Active Substance: TEDUGLUTIDE
     Dosage: 0.5 MILLIGRAM, QD
     Route: 042
     Dates: start: 20180106, end: 20190916
  9. TEDUGLUTIDE [Suspect]
     Active Substance: TEDUGLUTIDE
     Dosage: 3.4 MILLIGRAM, QD
     Route: 042
     Dates: start: 20190917, end: 20211117
  10. TEDUGLUTIDE [Suspect]
     Active Substance: TEDUGLUTIDE
     Dosage: 3.4 MILLIGRAM, QD
     Route: 042
     Dates: start: 20190917, end: 20211117
  11. TEDUGLUTIDE [Suspect]
     Active Substance: TEDUGLUTIDE
     Dosage: 3.4 MILLIGRAM, QD
     Route: 042
     Dates: start: 20190917, end: 20211117
  12. TEDUGLUTIDE [Suspect]
     Active Substance: TEDUGLUTIDE
     Dosage: 3.4 MILLIGRAM, QD
     Route: 042
     Dates: start: 20190917, end: 20211117
  13. TEDUGLUTIDE [Suspect]
     Active Substance: TEDUGLUTIDE
     Dosage: 0.9 MILLIGRAM, QD
     Route: 042
     Dates: start: 20220113, end: 20221228
  14. TEDUGLUTIDE [Suspect]
     Active Substance: TEDUGLUTIDE
     Dosage: 0.9 MILLIGRAM, QD
     Route: 042
     Dates: start: 20220113, end: 20221228
  15. TEDUGLUTIDE [Suspect]
     Active Substance: TEDUGLUTIDE
     Dosage: 0.9 MILLIGRAM, QD
     Route: 042
     Dates: start: 20220113, end: 20221228
  16. TEDUGLUTIDE [Suspect]
     Active Substance: TEDUGLUTIDE
     Dosage: 0.9 MILLIGRAM, QD
     Route: 042
     Dates: start: 20220113, end: 20221228
  17. LEVOTHYROXINE [Concomitant]
     Active Substance: LEVOTHYROXINE\LEVOTHYROXINE SODIUM
     Indication: Hypothyroidism
     Dosage: 37.5 MICROGRAM, QD
     Route: 048
     Dates: start: 20210630
  18. VANCOMYCIN [Concomitant]
     Active Substance: VANCOMYCIN
     Indication: Vascular device infection
     Dosage: 360 MILLIGRAM, BID
     Route: 042
     Dates: start: 20200915, end: 20200922
  19. CLOXACILLIN [Concomitant]
     Active Substance: CLOXACILLIN
     Indication: Vascular device infection
     Dosage: 40 MILLIGRAM, QID
     Route: 042
     Dates: start: 20200909, end: 20200915
  20. LEVOTHYROXINE SODIUM [Concomitant]
     Active Substance: LEVOTHYROXINE SODIUM
     Indication: Hypothyroidism
     Dosage: 25 MICROGRAM, QD
     Route: 048
     Dates: start: 20210630
  21. RANITIDINE HYDROCHLORIDE [Concomitant]
     Active Substance: RANITIDINE HYDROCHLORIDE
     Indication: Hyperchlorhydria
     Dosage: 15 MILLIGRAM, TID
     Route: 048
     Dates: start: 20140429
  22. URSODIOL [Concomitant]
     Active Substance: URSODIOL
     Indication: Hepatic failure
     Dosage: 50 MILLIGRAM, TID
     Route: 048
     Dates: start: 20160810
  23. LOPERAMIDE [Concomitant]
     Active Substance: LOPERAMIDE
     Indication: Diarrhoea
     Dosage: 3 MILLIGRAM, QID
     Route: 048
     Dates: start: 20150108
  24. AMOKSICILLIN [Concomitant]
     Indication: Gastrointestinal bacterial overgrowth
     Dosage: 50 MILLIGRAM, TID
     Route: 048
     Dates: start: 20140526
  25. GENTAMICIN [Concomitant]
     Active Substance: GENTAMICIN
     Indication: Gastrointestinal bacterial overgrowth
     Dosage: 16 MILLIGRAM, TID
     Route: 048
     Dates: start: 20140410
  26. METRONIDAZOLE [Concomitant]
     Active Substance: METRONIDAZOLE
     Indication: Gastrointestinal bacterial overgrowth
     Dosage: 60 MILLIGRAM, TID
     Route: 048
     Dates: start: 20140410
  27. CLOXACILLIN [Concomitant]
     Active Substance: CLOXACILLIN
     Indication: Infection
     Dosage: 6000 MILLIGRAM, QID
     Route: 042
     Dates: start: 20180512, end: 20180515
  28. CLOXACILLIN [Concomitant]
     Active Substance: CLOXACILLIN
     Indication: Vascular device infection
     Dosage: 400 MILLIGRAM, QID
     Route: 042
     Dates: start: 20200909, end: 20200915
  29. DICLOXACILLIN [Concomitant]
     Active Substance: DICLOXACILLIN
     Indication: Vascular device infection
     Dosage: 600 MILLIGRAM, QID
     Route: 042
     Dates: start: 20180518, end: 20180525
  30. ESOMEPRAZOLE [Concomitant]
     Active Substance: ESOMEPRAZOLE
     Indication: Gastric ulcer
     Dosage: 15 MILLIGRAM, BID
     Route: 048
     Dates: start: 20200213

REACTIONS (1)
  - Hypothyroidism [Not Recovered/Not Resolved]

NARRATIVE: CASE EVENT DATE: 20210630
